FAERS Safety Report 18866063 (Version 1)
Quarter: 2021Q1

REPORT INFORMATION
  Report Type: Spontaneous
  Country: US (occurrence: US)
  Receive Date: 20210209
  Receipt Date: 20210209
  Transmission Date: 20210420
  Serious: No
  Sender: FDA-Public Use
  Company Number: None

PATIENT
  Age: 52 Year
  Sex: Female
  Weight: 79.65 kg

DRUGS (12)
  1. VITAMIN E 100 UNIT [Concomitant]
  2. VITAMIN B ? 12 [Concomitant]
  3. VITAMIN D [Concomitant]
     Active Substance: VITAMIN D NOS
  4. VITAMIN B ? 6 [Concomitant]
  5. OMEPRAZOLE 20 MG [Concomitant]
     Active Substance: OMEPRAZOLE
  6. MULTIVITAMIN ORAL TABLET [Concomitant]
     Active Substance: VITAMINS
  7. EXEMESTANE, GENERIC FOR AROMASIN [Suspect]
     Active Substance: EXEMESTANE
     Indication: HER2 POSITIVE BREAST CANCER
     Dosage: ?          QUANTITY:1 TABLET(S);?
     Route: 048
     Dates: start: 20210111, end: 20210204
  8. XARELTO [Concomitant]
     Active Substance: RIVAROXABAN
  9. VITAMIN C [Concomitant]
     Active Substance: ASCORBIC ACID
  10. VITAMIN B COMPLEX [Concomitant]
     Active Substance: CYANOCOBALAMIN\DEXPANTHENOL\NIACINAMIDE\PYRIDOXINE HYDROCHLORIDE\RIBOFLAVIN 5^-PHOSPHATE SODIUM\THIAMINE HYDROCHLORIDE\VITAMIN B COMPLEX
  11. LUPRON DEPOT [Suspect]
     Active Substance: LEUPROLIDE ACETATE
     Indication: HER2 POSITIVE BREAST CANCER
     Dosage: ?          QUANTITY:1 INJECTION(S);OTHER FREQUENCY:1X PER MONTH;?
     Route: 030
     Dates: start: 20210111, end: 20210111
  12. EQUATE ACETAMINOPHEN [Concomitant]
     Active Substance: ACETAMINOPHEN

REACTIONS (2)
  - Breast cellulitis [None]
  - Deep vein thrombosis [None]

NARRATIVE: CASE EVENT DATE: 20210204
